FAERS Safety Report 6347195-0 (Version None)
Quarter: 2009Q3

REPORT INFORMATION
  Report Type: 
  Country: None (occurrence: None)
  Receive Date: 20090910
  Receipt Date: 20090904
  Transmission Date: 20100115
  Serious: Yes (Life-Threatening, Other)
  Sender: FDA-Public Use
  Company Number: PHHY2009CA36886

PATIENT
  Sex: Male

DRUGS (5)
  1. CLOZARIL [Suspect]
     Indication: SCHIZOPHRENIA
     Dosage: 100 MG, UNK
     Route: 048
     Dates: start: 20090807, end: 20090827
  2. ZYPREXA [Concomitant]
     Dosage: 7.5 MG, UNK
  3. ATIVAN [Concomitant]
     Dosage: 0.5 MG, TID
  4. RESTORIL [Concomitant]
     Dosage: 30 MG, UNK
  5. RAMIPRIL [Concomitant]
     Dosage: 45 MG, UNK

REACTIONS (3)
  - ARRHYTHMIA [None]
  - INFLAMMATION [None]
  - MYOCARDITIS [None]
